FAERS Safety Report 4742160-9 (Version None)
Quarter: 2005Q3

REPORT INFORMATION
  Report Type: 
  Country: None (occurrence: None)
  Receive Date: 20050811
  Receipt Date: 20050307
  Transmission Date: 20060218
  Serious: No
  Sender: FDA-Public Use
  Company Number: US-GLAXOSMITHKLINE-A0548627A

PATIENT
  Age: 49 Year
  Sex: Female

DRUGS (9)
  1. PAXIL CR [Suspect]
     Indication: DEPRESSION
     Dosage: 12.5MG PER DAY
     Route: 048
     Dates: start: 20050101
  2. TRAZODONE [Concomitant]
     Route: 065
  3. LOTENSIN [Concomitant]
  4. DURAGESIC-100 [Concomitant]
  5. CELEBREX [Concomitant]
  6. ALTIM [Concomitant]
     Route: 065
  7. FLEXERIL [Concomitant]
  8. PHENERGAN HCL [Concomitant]
     Route: 065
  9. ALBUTEROL [Concomitant]

REACTIONS (3)
  - INSOMNIA [None]
  - MYALGIA [None]
  - NAUSEA [None]
